FAERS Safety Report 11288223 (Version 1)
Quarter: 2015Q3

REPORT INFORMATION
  Report Type: Spontaneous
  Country: US (occurrence: None)
  Receive Date: 20150720
  Receipt Date: 20150720
  Transmission Date: 20151125
  Serious: Yes (Hospitalization)
  Sender: FDA-Public Use
  Company Number: None

PATIENT
  Age: 18 Year
  Sex: Male
  Weight: 95 kg

DRUGS (4)
  1. PREDNISONE. [Suspect]
     Active Substance: PREDNISONE
     Dates: end: 20150613
  2. DAUNORUBICIN [Suspect]
     Active Substance: DAUNORUBICIN
     Dates: end: 20150626
  3. ONCASPAR [Suspect]
     Active Substance: PEGASPARGASE
     Dates: end: 20150616
  4. VINCRISTINE SULFATE. [Suspect]
     Active Substance: VINCRISTINE SULFATE
     Dates: end: 20150626

REACTIONS (1)
  - Lung infection [None]

NARRATIVE: CASE EVENT DATE: 20150714
